FAERS Safety Report 23557339 (Version 1)
Quarter: 2024Q1

REPORT INFORMATION
  Report Type: Spontaneous
  Country: TW (occurrence: TW)
  Receive Date: 20240223
  Receipt Date: 20240223
  Transmission Date: 20240409
  Serious: Yes (Death, Hospitalization, Other)
  Sender: FDA-Public Use
  Company Number: TW-IPCA LABORATORIES LIMITED-IPC-2024-TW-000389

PATIENT

DRUGS (5)
  1. AMLODIPINE [Suspect]
     Active Substance: AMLODIPINE BESYLATE
     Indication: Product used for unknown indication
     Dosage: 10 MILLIGRAM
     Route: 065
  2. FUROSEMIDE [Suspect]
     Active Substance: FUROSEMIDE
     Indication: Product used for unknown indication
     Dosage: 20 MILLIGRAM
     Route: 042
  3. AMLODIPINE\HYDROCHLOROTHIAZIDE\VALSARTAN [Suspect]
     Active Substance: AMLODIPINE\HYDROCHLOROTHIAZIDE\VALSARTAN
     Indication: Product used for unknown indication
     Dosage: 10/160/25 MILLIGRAM
     Route: 065
  4. ATENOLOL [Concomitant]
     Active Substance: ATENOLOL
     Indication: Product used for unknown indication
     Dosage: UNK
     Route: 065
  5. GLIMEPIRIDE [Concomitant]
     Active Substance: GLIMEPIRIDE
     Indication: Diabetes mellitus
     Dosage: UNK
     Route: 065

REACTIONS (12)
  - BRASH syndrome [Fatal]
  - Atrial fibrillation [Fatal]
  - Electrocardiogram QRS complex prolonged [Fatal]
  - Arterial stenosis [Fatal]
  - Bradycardia [Fatal]
  - Hyperkalaemia [Fatal]
  - Pulmonary oedema [Fatal]
  - Cardiogenic shock [Fatal]
  - Atrioventricular block [Fatal]
  - Cardiomegaly [Fatal]
  - Hypotension [Unknown]
  - Overdose [Fatal]
